FAERS Safety Report 19188554 (Version 2)
Quarter: 2021Q2

REPORT INFORMATION
  Report Type: Spontaneous
  Country: US (occurrence: US)
  Receive Date: 20210427
  Receipt Date: 20210504
  Transmission Date: 20210717
  Serious: Yes (Other)
  Sender: FDA-Public Use
  Company Number: US-UROGEN PHARMA LTD.-2021-UGN-000021

PATIENT
  Age: 74 Year

DRUGS (2)
  1. JELMYTO [Suspect]
     Active Substance: MITOMYCIN
     Dosage: 40 MG (INSTILLATION)
  2. JELMYTO [Suspect]
     Active Substance: MITOMYCIN
     Indication: PRODUCT USED FOR UNKNOWN INDICATION
     Dosage: UNK (INSTILLATION)
     Dates: start: 20210318, end: 20210318

REACTIONS (1)
  - Haemorrhage [Unknown]
